FAERS Safety Report 7440809-3 (Version None)
Quarter: 2011Q2

REPORT INFORMATION
  Report Type: 
  Country: None (occurrence: None)
  Receive Date: 20110427
  Receipt Date: 20110426
  Transmission Date: 20111010
  Serious: Yes (Hospitalization, Other)
  Sender: FDA-Public Use
  Company Number: US-PFIZER INC-2011090083

PATIENT
  Sex: Female

DRUGS (3)
  1. COMPAZINE [Suspect]
     Dosage: UNK
  2. XANAX [Suspect]
     Indication: ANXIETY
     Dosage: UNK
  3. DEMEROL [Suspect]
     Dosage: UNK

REACTIONS (4)
  - RESPIRATORY DISTRESS [None]
  - REACTION TO DRUG EXCIPIENTS [None]
  - DRUG HYPERSENSITIVITY [None]
  - ANAPHYLACTIC SHOCK [None]
